FAERS Safety Report 7231761 (Version 4)
Quarter: 2013Q3

REPORT INFORMATION
  Report Type: Report from Study
  Country: US (occurrence: US)
  Receive Date: 20091228
  Receipt Date: 20130821
  Transmission Date: 20140515
  Serious: Yes (Death, Life-Threatening, Other)
  Sender: FDA-Public Use
  Company Number: US-BAYER-200925974NA

PATIENT
  Age: 71 Year
  Sex: Male
  Weight: 62.86 kg

DRUGS (25)
  1. APROTININ [Suspect]
     Indication: AORTIC VALVE REPLACEMENT
     Dosage: TEST DOSE
     Route: 042
     Dates: start: 20090626, end: 20090626
  2. APROTININ [Suspect]
     Indication: CORONARY ARTERY BYPASS
     Dosage: LOADING DOSE
     Route: 042
     Dates: start: 20090626, end: 20090626
  3. APROTININ [Suspect]
     Indication: AORTIC VALVE REPLACEMENT
     Dosage: 50 ML/HR DURING SURGERY
     Route: 042
     Dates: start: 20090626, end: 20090626
  4. UBIDECARENONE [Concomitant]
     Dosage: 100 MG (DAILY DOSE), , ORAL
     Route: 048
  5. CRESTOR [Concomitant]
     Dosage: 40 MG (DAILY DOSE), , ORAL
     Route: 048
  6. ASA [Concomitant]
     Dosage: 81 MG (DAILY DOSE), , ORAL
     Route: 048
  7. FINASTERIDE [Concomitant]
     Dosage: 5 MG (DAILY DOSE), , ORAL
     Route: 048
  8. FISH OIL [Concomitant]
     Dosage: 1000 MG (DAILY DOSE), , ORAL
     Route: 048
  9. FOLATE SODIUM [Concomitant]
     Dosage: 1 MG (DAILY DOSE), , ORAL
     Route: 048
  10. AMARYL [Concomitant]
     Dosage: 4 MG (DAILY DOSE), , ORAL
     Route: 048
  11. ISOSORBIDE [Concomitant]
     Dosage: 120 MG (DAILY DOSE), , ORAL
     Route: 048
  12. LASIX [Concomitant]
     Dosage: 20 MG (DAILY DOSE), , ORAL
     Route: 048
  13. LISINOPRIL [Concomitant]
     Dosage: 10 MG (DAILY DOSE), ,
  14. METFORMIN [Concomitant]
     Dosage: 2000 MG (DAILY DOSE), , ORAL
     Route: 048
  15. METOPROLOL [Concomitant]
     Dosage: 100 MG (DAILY DOSE), , ORAL
     Route: 048
  16. MULTIVITAMIN [Concomitant]
  17. NITROBID [GLYCERYL TRINITRATE] [Concomitant]
     Dosage: 0.04 MG (DAILY DOSE), PRN, SUBLINGUAL
     Route: 060
  18. NORVASC [Concomitant]
     Dosage: 5 MG (DAILY DOSE), , ORAL
     Route: 048
  19. PLAVIX [Concomitant]
     Dosage: 75 MG (DAILY DOSE), , ORAL
     Route: 048
  20. TERAZOSIN [Concomitant]
     Dosage: 2 MG (DAILY DOSE), , ORAL
     Route: 048
  21. TRICOR [Concomitant]
     Dosage: 160 MG (DAILY DOSE), , ORAL
     Route: 048
  22. CYMBALTA [Concomitant]
     Dosage: 30 MG (DAILY DOSE), , ORAL
     Route: 048
  23. PNEUMOVAX [Concomitant]
     Dosage: 25 ?G (DAILY DOSE), , INTRAMUSCULAR
     Route: 030
     Dates: start: 20090524
  24. AMIODARONE [Concomitant]
  25. HESPAN [Concomitant]
     Indication: URINE OUTPUT DECREASED
     Dosage: 500 ML (DAILY DOSE), , IV BOLUS
     Route: 040
     Dates: start: 20090627, end: 20090627

REACTIONS (4)
  - Pulseless electrical activity [Fatal]
  - Ventricular fibrillation [Recovered/Resolved]
  - Postoperative renal failure [Not Recovered/Not Resolved]
  - Haemodynamic instability [Recovering/Resolving]
